FAERS Safety Report 10559524 (Version 1)
Quarter: 2014Q4

REPORT INFORMATION
  Report Type: Report from Study
  Country: AU (occurrence: AU)
  Receive Date: 20141103
  Receipt Date: 20141103
  Transmission Date: 20150529
  Serious: Yes (Hospitalization, Other)
  Sender: FDA-Public Use
  Company Number: PHHY2014AU142507

PATIENT
  Age: 21 Year
  Sex: Male

DRUGS (3)
  1. CLOZARIL [Suspect]
     Active Substance: CLOZAPINE
     Indication: PRODUCT USED FOR UNKNOWN INDICATION
     Dosage: 250 MG DAILY AT NIGHT
     Route: 065
  2. RANITIDINE [Interacting]
     Active Substance: RANITIDINE\RANITIDINE HYDROCHLORIDE
     Indication: GASTROOESOPHAGEAL REFLUX DISEASE
  3. RANITIDINE [Interacting]
     Active Substance: RANITIDINE\RANITIDINE HYDROCHLORIDE
     Indication: CHEST PAIN
     Route: 065

REACTIONS (4)
  - Antipsychotic drug level above therapeutic [Unknown]
  - Fall [Unknown]
  - Seizure [Unknown]
  - Drug interaction [Unknown]

NARRATIVE: CASE EVENT DATE: 20140913
